FAERS Safety Report 17662857 (Version 2)
Quarter: 2020Q2

REPORT INFORMATION
  Report Type: Spontaneous
  Country: RO (occurrence: RO)
  Receive Date: 20200413
  Receipt Date: 20200605
  Transmission Date: 20200713
  Serious: Yes (Hospitalization, Disabling, Other)
  Sender: FDA-Public Use
  Company Number: US-AMGEN-ROUSP2020056794

PATIENT
  Age: 74 Year
  Sex: Female
  Weight: 55 kg

DRUGS (9)
  1. METOPROLOL. [Concomitant]
     Active Substance: METOPROLOL
     Indication: HEART RATE
     Dosage: 50 MILLIGRAM, BID
     Dates: start: 2013
  2. PROLIA [Suspect]
     Active Substance: DENOSUMAB
     Indication: OSTEOPOROSIS POSTMENOPAUSAL
     Dosage: 60 MILLIGRAM, Q6MO
     Route: 065
     Dates: start: 20190620, end: 20190620
  3. CELADRIN [Concomitant]
     Active Substance: MENTHOL
     Dosage: CELADRIN, CALCIUM 1200 MG - I / DAY - 10 DAYS A MONTH
  4. ATACAND [Concomitant]
     Active Substance: CANDESARTAN CILEXETIL
     Indication: HEART RATE
     Dosage: 160 MILLIGRAM
     Dates: start: 2017
  5. PIRACETAM [Concomitant]
     Active Substance: PIRACETAM
     Dosage: 400 MILLIGRAM, QD
  6. ARTERIN [Concomitant]
     Dosage: UNK UNK, QD
  7. VITAMIN D3 [Concomitant]
     Active Substance: CHOLECALCIFEROL
     Dosage: UNK UNK, QD
  8. CAVINTON [Concomitant]
     Active Substance: VINPOCETINE
     Dosage: 10 MILLIGRAM, QD
     Dates: start: 2019
  9. NORVASC [Concomitant]
     Active Substance: AMLODIPINE BESYLATE
     Dosage: 5 MILLIGRAM, QD

REACTIONS (14)
  - Salivary gland adenoma [Recovered/Resolved]
  - Peripheral swelling [Unknown]
  - Hyperhidrosis [Unknown]
  - Back pain [Unknown]
  - Gastrointestinal polyp haemorrhage [Unknown]
  - Dizziness [Not Recovered/Not Resolved]
  - Atrial fibrillation [Unknown]
  - Gait disturbance [Not Recovered/Not Resolved]
  - Decreased appetite [Recovered/Resolved]
  - Pain [Unknown]
  - Anaemia [Not Recovered/Not Resolved]
  - Arthralgia [Not Recovered/Not Resolved]
  - Weight decreased [Unknown]
  - Pain in extremity [Not Recovered/Not Resolved]

NARRATIVE: CASE EVENT DATE: 2019
